FAERS Safety Report 10146848 (Version 3)
Quarter: 2014Q2

REPORT INFORMATION
  Report Type: Spontaneous
  Country: AR (occurrence: AR)
  Receive Date: 20140501
  Receipt Date: 20140506
  Transmission Date: 20141212
  Serious: Yes (Other)
  Sender: FDA-Public Use
  Company Number: AR-PFIZER INC-2014080375

PATIENT
  Age: 57 Year
  Sex: Female

DRUGS (1)
  1. SUTENT [Suspect]
     Indication: RENAL CANCER
     Dosage: UNK
     Dates: start: 201206

REACTIONS (11)
  - Haemorrhage [Recovered/Resolved]
  - Pneumonia [Recovered/Resolved]
  - Enterocolitis haemorrhagic [Recovered/Resolved]
  - Haematemesis [Recovered/Resolved]
  - Dyspnoea [Not Recovered/Not Resolved]
  - Blood pressure abnormal [Not Recovered/Not Resolved]
  - Thyroid disorder [Not Recovered/Not Resolved]
  - Pain [Not Recovered/Not Resolved]
  - Speech disorder [Not Recovered/Not Resolved]
  - Headache [Recovered/Resolved]
  - Blood pressure increased [Recovered/Resolved]
